FAERS Safety Report 12069248 (Version 3)
Quarter: 2016Q4

REPORT INFORMATION
  Report Type: Spontaneous
  Country: DE (occurrence: DE)
  Receive Date: 20160211
  Receipt Date: 20161118
  Transmission Date: 20170206
  Serious: Yes (Death, Other)
  Sender: FDA-Public Use
  Company Number: DE-ACTELION-A-CH2016-130558

PATIENT
  Age: 13 Year
  Sex: Female

DRUGS (2)
  1. TRACLEER [Suspect]
     Active Substance: BOSENTAN
     Indication: PULMONARY ARTERIAL HYPERTENSION
     Dosage: 32 MG, UNK
     Route: 048
     Dates: start: 20151222
  2. TRACLEER [Suspect]
     Active Substance: BOSENTAN
     Dosage: 125 MG, UNK
     Route: 048
     Dates: end: 20160203

REACTIONS (8)
  - Organ failure [Fatal]
  - Bone marrow transplant [Unknown]
  - Bone marrow failure [Unknown]
  - Extracorporeal membrane oxygenation [Unknown]
  - Vasculitis [Unknown]
  - Leukaemia [Unknown]
  - Type III immune complex mediated reaction [Unknown]
  - Respiratory failure [Unknown]

NARRATIVE: CASE EVENT DATE: 2015
